FAERS Safety Report 4676658-9 (Version None)
Quarter: 2005Q2

REPORT INFORMATION
  Report Type: 
  Country: None (occurrence: None)
  Receive Date: 20050526
  Receipt Date: 20050513
  Transmission Date: 20051028
  Serious: Yes (Death, Hospitalization, Other)
  Sender: FDA-Public Use
  Company Number: 2005074783

PATIENT
  Age: 63 Year
  Sex: Female
  Weight: 54.8852 kg

DRUGS (9)
  1. SOLU-MEDROL [Suspect]
     Indication: MULTIPLE MYELOMA
  2. THALOMID [Suspect]
     Indication: MULTIPLE MYELOMA
     Dosage: 200 MG (50 MG) ORAL
     Route: 048
     Dates: start: 20040712, end: 20041001
  3. PROCARDIA XL [Concomitant]
  4. INSULIN [Concomitant]
  5. CALCIUM (CALCIUM) [Concomitant]
  6. TUMS (CALCIUM CARBONATE) [Concomitant]
  7. DIGOXIN [Concomitant]
  8. OXYCONTIN [Concomitant]
  9. LOPRESSOR [Concomitant]

REACTIONS (7)
  - HAEMATOCRIT DECREASED [None]
  - HAEMOGLOBIN DECREASED [None]
  - LOBAR PNEUMONIA [None]
  - NEUTROPENIA [None]
  - PLATELET COUNT DECREASED [None]
  - RESPIRATORY FAILURE [None]
  - SEPSIS [None]
